FAERS Safety Report 20840076 (Version 1)
Quarter: 2022Q2

REPORT INFORMATION
  Report Type: Spontaneous
  Country: US (occurrence: US)
  Receive Date: 20220517
  Receipt Date: 20220517
  Transmission Date: 20220721
  Serious: Yes (Other)
  Sender: FDA-Public Use
  Company Number: US-PFIZER INC-2014071253

PATIENT
  Age: 56 Year
  Sex: Male

DRUGS (3)
  1. OXALIPLATIN [Suspect]
     Active Substance: OXALIPLATIN
     Indication: Colon cancer metastatic
     Dosage: UNK
  2. FLUOROURACIL [Concomitant]
     Active Substance: FLUOROURACIL
     Indication: Colon cancer metastatic
     Dosage: UNK
  3. LEUCOVORIN [Concomitant]
     Active Substance: LEUCOVORIN
     Indication: Colon cancer metastatic
     Dosage: UNK

REACTIONS (12)
  - Anaphylactic reaction [Unknown]
  - Autoimmune haemolytic anaemia [Unknown]
  - Type I hypersensitivity [Unknown]
  - Type II hypersensitivity [Unknown]
  - Back pain [Unknown]
  - Chills [Unknown]
  - Dizziness [Unknown]
  - Electrocardiogram change [Unknown]
  - Pyrexia [Unknown]
  - Palmar erythema [Unknown]
  - Palpitations [Unknown]
  - Dyspnoea [Unknown]
